FAERS Safety Report 7209117-X (Version None)
Quarter: 2011Q1

REPORT INFORMATION
  Report Type: 
  Country: None (occurrence: None)
  Receive Date: 20110104
  Receipt Date: 20110104
  Transmission Date: 20110831
  Serious: Yes (Hospitalization)
  Sender: FDA-Public Use
  Company Number: None

PATIENT
  Age: 10 Year
  Sex: Female

DRUGS (1)
  1. FENTANYL [Suspect]

REACTIONS (4)
  - APNOEA [None]
  - MEDICATION ERROR [None]
  - ACCIDENTAL DRUG INTAKE BY CHILD [None]
  - LOSS OF CONSCIOUSNESS [None]
